FAERS Safety Report 6824068-8 (Version None)
Quarter: 2010Q3

REPORT INFORMATION
  Report Type: 
  Country: None (occurrence: None)
  Receive Date: 20100708
  Receipt Date: 20100628
  Transmission Date: 20110219
  Serious: Yes (Other)
  Sender: FDA-Public Use
  Company Number: AT-AMGEN-QUU421391

PATIENT
  Age: 58 Year
  Sex: Female
  Weight: 85 kg

DRUGS (7)
  1. ENBREL [Suspect]
     Indication: RHEUMATOID ARTHRITIS
     Dosage: 50 MG WEEKLY DOSE
     Dates: start: 20090701, end: 20100201
  2. ENBREL [Suspect]
     Dosage: 50 MG WEEKLY DOSE
     Dates: start: 20100401
  3. PREDNISOLONE [Concomitant]
  4. TRAMAL [Concomitant]
     Dosage: 50 MG TWICE DAILY WHEN NEEDED
  5. TRAZODONE HCL [Concomitant]
  6. NOVONORM [Concomitant]
  7. ASPIRIN [Concomitant]
     Indication: RHEUMATOID ARTHRITIS

REACTIONS (1)
  - HYPERHIDROSIS [None]
